FAERS Safety Report 4884155-0 (Version None)
Quarter: 2005Q4

REPORT INFORMATION
  Report Type: 
  Country: None (occurrence: None)
  Receive Date: 20051201
  Receipt Date: 20050908
  Transmission Date: 20060501
  Serious: No
  Sender: FDA-Public Use
  Company Number: 2005PV001912

PATIENT
  Age: 70 Year
  Sex: Female
  Weight: 73.9363 kg

DRUGS (7)
  1. BYETTA [Suspect]
     Indication: DIABETES MELLITUS NON-INSULIN-DEPENDENT
     Dosage: 5 MCG;BID;SC
     Route: 058
     Dates: start: 20050907
  2. AMARYL [Concomitant]
  3. ACTOS [Concomitant]
  4. FORTAMET [Concomitant]
  5. SYNTHROID [Concomitant]
  6. CILOSTAZOL [Concomitant]
  7. LIPITOR [Concomitant]

REACTIONS (7)
  - ASTHENIA [None]
  - BLOOD GLUCOSE DECREASED [None]
  - DYSGEUSIA [None]
  - FEELING HOT [None]
  - FEELING JITTERY [None]
  - HYPERHIDROSIS [None]
  - VISION BLURRED [None]
